FAERS Safety Report 19688978 (Version 1)
Quarter: 2021Q3

REPORT INFORMATION
  Report Type: Spontaneous
  Country: US (occurrence: US)
  Receive Date: 20210811
  Receipt Date: 20210811
  Transmission Date: 20211014
  Serious: No
  Sender: FDA-Public Use
  Company Number: US-SA-2021SA264406

PATIENT
  Sex: Female

DRUGS (4)
  1. MULTIVITAMINS [VITAMINS NOS] [Concomitant]
     Active Substance: VITAMINS
  2. DUPIXENT [Suspect]
     Active Substance: DUPILUMAB
     Indication: DERMATITIS ATOPIC
     Dosage: 300 MG, QOW, 300MG/2ML
     Route: 058
     Dates: start: 202002
  3. CLARITIN [Concomitant]
     Active Substance: LORATADINE
     Dosage: 10 MG
  4. EUCRISA [Concomitant]
     Active Substance: CRISABOROLE
     Dosage: 2 %

REACTIONS (2)
  - COVID-19 [Unknown]
  - SARS-CoV-2 test positive [Unknown]
